FAERS Safety Report 6871895-7 (Version None)
Quarter: 2010Q3

REPORT INFORMATION
  Report Type: 
  Country: None (occurrence: None)
  Receive Date: 20100723
  Receipt Date: 20100715
  Transmission Date: 20110219
  Serious: Yes (Death, Hospitalization, Other)
  Sender: FDA-Public Use
  Company Number: US-JNJFOC-20100404159

PATIENT
  Sex: Female

DRUGS (1)
  1. ORTHO EVRA [Suspect]
     Indication: CONTRACEPTION
     Route: 062

REACTIONS (6)
  - CEREBROVASCULAR ACCIDENT [None]
  - HYPOXIA [None]
  - MALIGNANT HYPERTENSION [None]
  - MEDICATION ERROR [None]
  - PULMONARY EMBOLISM [None]
  - THROMBOSIS [None]
